FAERS Safety Report 5087776-8 (Version None)
Quarter: 2006Q3

REPORT INFORMATION
  Report Type: 
  Country: None (occurrence: None)
  Receive Date: 20060824
  Receipt Date: 20060417
  Transmission Date: 20061208
  Serious: Yes (Other)
  Sender: FDA-Public Use
  Company Number: US-ROCHE-444896

PATIENT
  Age: 56 Year
  Sex: Female
  Weight: 47.2 kg

DRUGS (5)
  1. PEGASYS [Suspect]
     Indication: HEPATITIS C
     Route: 058
     Dates: start: 20040308, end: 20041202
  2. COPEGUS [Suspect]
     Indication: HEPATITIS C
     Dosage: TWO TABLETS IN THE MORNING AND TWO TABLETS IN THE EVENING.
     Route: 048
     Dates: start: 20040308, end: 20041202
  3. ZOLOFT [Concomitant]
     Route: 048
  4. METHOCARBAMOL [Concomitant]
  5. VALIUM [Concomitant]

REACTIONS (10)
  - AORTIC OCCLUSION [None]
  - ASTHENIA [None]
  - ATTENTION DEFICIT/HYPERACTIVITY DISORDER [None]
  - CARDIOVASCULAR DISORDER [None]
  - DISTURBANCE IN ATTENTION [None]
  - MEMORY IMPAIRMENT [None]
  - MUSCULAR WEAKNESS [None]
  - PLATELET AGGREGATION ABNORMAL [None]
  - PLATELET AGGREGATION INCREASED [None]
  - PLATELET COUNT DECREASED [None]
